FAERS Safety Report 5884980-3 (Version None)
Quarter: 2008Q3

REPORT INFORMATION
  Report Type: 
  Country: None (occurrence: None)
  Receive Date: 20080916
  Receipt Date: 20080908
  Transmission Date: 20090109
  Serious: Yes (Hospitalization)
  Sender: FDA-Public Use
  Company Number: KR-ROCHE-585481

PATIENT
  Sex: Male
  Weight: 52.3 kg

DRUGS (32)
  1. CAPECITABINE [Suspect]
     Dosage: DAYS 1 TO 14, EVERY 3 WEEKS
     Route: 048
     Dates: start: 20080506
  2. CAPECITABINE [Suspect]
     Dosage: DAYS 1 TO 14, EVERY 3 WEEKS.
     Route: 048
     Dates: start: 20080619, end: 20080807
  3. CAPECITABINE [Suspect]
     Dosage: DAYS 1 TO 14, EVERY 3 WEEKS. TEMPORARILY INTERRUPTED
     Route: 048
     Dates: end: 20080908
  4. BLINDED BEVACIZUMAB [Suspect]
     Dosage: FREQUENCY REPORTED AS 3/52
     Route: 042
     Dates: start: 20080506
  5. BLINDED BEVACIZUMAB [Suspect]
     Dosage: DAY 1, EVERY 3 WEEKS. DOSE FORM: INFUSION TEMPORARILY INTURRUPTED
     Route: 042
     Dates: start: 20080619, end: 20080908
  6. CISPLATIN [Suspect]
     Dosage: FREQUENCY REPORTED AS 3/52
     Route: 042
     Dates: start: 20080506
  7. CISPLATIN [Suspect]
     Dosage: DAY 1, EVERY 3 WEEKS. DOSE FORM: INFUSION
     Route: 042
     Dates: start: 20080619
  8. CISPLATIN [Suspect]
     Dosage: FORM: INFUSION
     Route: 042
  9. CISPLATIN [Suspect]
     Dosage: DAY 1, EVERY 3 WEEKS. DOSE FORM: INFUSION TEMPORARILY INTURUPTED
     Route: 042
     Dates: end: 20080908
  10. OXYCONTIN [Concomitant]
     Dates: start: 20080101
  11. OXYCONTIN [Concomitant]
     Dates: start: 20080630
  12. OXYCONTIN [Concomitant]
     Dates: start: 20080906
  13. LIPITOR [Concomitant]
     Dates: start: 20000101
  14. CELEBREX [Concomitant]
     Dates: start: 20080101
  15. ZOLPIDEM [Concomitant]
     Dates: start: 20080101
  16. NEXIUM [Concomitant]
     Dates: start: 20080513
  17. ORDINE [Concomitant]
     Dates: start: 20080101
  18. ORDINE [Concomitant]
     Dates: start: 20080703, end: 20080703
  19. ORDINE [Concomitant]
     Dates: start: 20080905
  20. MOVICOL [Concomitant]
     Dates: start: 20080101
  21. LARGACTIL [Concomitant]
     Dates: start: 20080517
  22. ZOFRAN [Concomitant]
     Dates: start: 20080621
  23. MAGNESIUM OXIDE [Concomitant]
     Dates: start: 20080703, end: 20080703
  24. CODEINE PHOSPHATE/IBUPROFEN [Concomitant]
     Dosage: TDD: 3T, DRUG: CODEIN, AAP, IBUPROFEN.
     Dates: start: 20080703, end: 20080704
  25. BISACODYL [Concomitant]
     Dosage: TDD: 2T, DRUG: BISACODYL INS ANUS
     Dates: start: 20080703, end: 20080721
  26. LACTULOSE [Concomitant]
     Dates: start: 20080630
  27. METOCLOPRAMIDE [Concomitant]
     Dates: start: 20080630
  28. FENTANYL TRANSDERMAL SYSTEM [Concomitant]
     Dates: start: 20080616
  29. CEFODOX [Concomitant]
     Dates: start: 20080709, end: 20080714
  30. DEXAMETHASONE [Concomitant]
     Dates: start: 20080619
  31. GRANISETRON [Concomitant]
     Dates: start: 20080619
  32. GRANISETRON [Concomitant]
     Dates: start: 20080620

REACTIONS (1)
  - GASTRIC PERFORATION [None]
